FAERS Safety Report 7161249-0 (Version None)
Quarter: 2010Q4

REPORT INFORMATION
  Report Type: 
  Country: None (occurrence: None)
  Receive Date: 20101210
  Receipt Date: 20101210
  Transmission Date: 20110411
  Serious: Yes (Disabling, Other)
  Sender: FDA-Public Use
  Company Number: None

PATIENT
  Age: 1 Year
  Sex: Male
  Weight: 11.3399 kg

DRUGS (1)
  1. WELLBUTRIN SR [Suspect]
     Indication: DEPRESSION
     Dosage: 150MG 3 TIMES DAILY PO
     Route: 048
     Dates: start: 20021201

REACTIONS (11)
  - AMBLYOPIA [None]
  - BALANCE DISORDER [None]
  - CONSTIPATION [None]
  - DISTURBANCE IN ATTENTION [None]
  - FRUSTRATION [None]
  - LEARNING DISORDER [None]
  - MATERNAL DRUGS AFFECTING FOETUS [None]
  - PSYCHOMOTOR HYPERACTIVITY [None]
  - SINUSITIS [None]
  - SKULL MALFORMATION [None]
  - SPEECH DISORDER DEVELOPMENTAL [None]
